FAERS Safety Report 9413840 (Version 2)
Quarter: 2013Q3

REPORT INFORMATION
  Report Type: Report from Study
  Country: GB (occurrence: GB)
  Receive Date: 20130723
  Receipt Date: 20130911
  Transmission Date: 20140515
  Serious: Yes (Death)
  Sender: FDA-Public Use
  Company Number: GB-UCBSA-092612

PATIENT
  Age: 33 Year
  Sex: Male

DRUGS (5)
  1. LACOSAMIDE [Suspect]
     Indication: EPILEPSY
     Dosage: UNKNOWN DOSE
     Dates: start: 20091125
  2. OXCARBAZEPINE [Concomitant]
  3. PHENYTOIN [Concomitant]
  4. ZONISAMIDE [Concomitant]
  5. CLONAZEPAM [Concomitant]

REACTIONS (1)
  - Sudden unexplained death in epilepsy [Fatal]
